FAERS Safety Report 22360744 (Version 2)
Quarter: 2023Q2

REPORT INFORMATION
  Report Type: Report from Study
  Country: US (occurrence: US)
  Receive Date: 20230524
  Receipt Date: 20230531
  Transmission Date: 20230721
  Serious: Yes (Hospitalization)
  Sender: FDA-Public Use
  Company Number: US-REGENERON PHARMACEUTICALS, INC.-2023-067097

PATIENT
  Age: 57 Year
  Sex: Female

DRUGS (21)
  1. CEMIPLIMAB [Suspect]
     Active Substance: CEMIPLIMAB
     Indication: Ovarian cancer
     Dosage: 350 MG
     Route: 042
     Dates: start: 20230515
  2. ACETAMINOPHEN [Concomitant]
     Active Substance: ACETAMINOPHEN
     Indication: Pain
     Dosage: 650 MG, Q6H PRN
     Route: 048
     Dates: start: 20200206
  3. LIDOCAINE [Concomitant]
     Active Substance: LIDOCAINE
     Indication: Catheter management
     Dosage: 4%, Q6H PRN
     Route: 061
     Dates: start: 20220508
  4. NARCAN [Concomitant]
     Active Substance: NALOXONE HYDROCHLORIDE
     Indication: Overdose
     Dosage: 1 SPRAY, AS NECESSARY
     Dates: start: 20220728, end: 20230416
  5. ALBUTEROL [Concomitant]
     Active Substance: ALBUTEROL
     Indication: Dyspnoea
     Dosage: 3 ML, Q6H PRN
     Dates: start: 20221223
  6. GABAPENTIN [Concomitant]
     Active Substance: GABAPENTIN
     Indication: Neuropathy peripheral
     Dosage: 600 MG, 3 TABS-1 TAB IN MORNING AND 2 TAB IN NIGHT
     Route: 048
     Dates: start: 20220923
  7. GABAPENTIN [Concomitant]
     Active Substance: GABAPENTIN
     Indication: Pain in extremity
     Dosage: 600 MG, 1 TAB IN MORNING AND 2 TAB IN NIGHT (TOTAL 3 TABS DAILY)
     Route: 048
     Dates: start: 20220923
  8. TIZANIDINE [Concomitant]
     Active Substance: TIZANIDINE
     Indication: Back pain
     Dosage: 4 MG, 3 TAB-1 TAB IN A DAY-2 TAB IN BED TIME
     Route: 048
     Dates: start: 20230130
  9. KLONOPIN [Concomitant]
     Active Substance: CLONAZEPAM
     Indication: Anxiety
     Dosage: 0.5 MG, QD PRN
     Route: 048
     Dates: start: 20221019
  10. ZOLOFT [Concomitant]
     Active Substance: SERTRALINE HYDROCHLORIDE
     Indication: Anxiety
     Dosage: 100 MG, QD
     Route: 048
     Dates: start: 20221017
  11. ALBUTEROL [Concomitant]
     Active Substance: ALBUTEROL
     Indication: Dyspnoea
     Dosage: 2 PUFF, Q6H PRN
     Dates: start: 20221017
  12. HYDROMORPHONE [Concomitant]
     Active Substance: HYDROMORPHONE
     Indication: Pain
     Dosage: 2 MG, Q6H PRN
     Route: 048
     Dates: start: 20230405
  13. HYDROMORPHONE [Concomitant]
     Active Substance: HYDROMORPHONE
     Indication: Abdominal pain
     Dosage: 1 MG, Q4H PRN
     Route: 042
     Dates: start: 20230417, end: 20230418
  14. DEXLANSOPRAZOLE [Concomitant]
     Active Substance: DEXLANSOPRAZOLE
     Indication: Gastritis
     Dosage: 60 MG, QD
     Route: 048
     Dates: start: 20230220
  15. LINZESS [Concomitant]
     Active Substance: LINACLOTIDE
     Indication: Constipation
     Dosage: 290 UG, QD
     Route: 048
     Dates: start: 20220104
  16. LORATADINE [Concomitant]
     Active Substance: LORATADINE
     Indication: Rhinitis allergic
     Dosage: 10 MG, QD
     Route: 048
     Dates: start: 20230424
  17. KETOROLAC [Concomitant]
     Active Substance: KETOROLAC TROMETHAMINE
     Indication: Abdominal pain
     Dosage: 15 MG, QD
     Route: 042
     Dates: start: 20230418, end: 20230418
  18. ONDANSETRON [Concomitant]
     Active Substance: ONDANSETRON
     Indication: Nausea
     Dosage: 8 MG, Q8H PRN
     Route: 042
     Dates: start: 20230417, end: 20230418
  19. ONDANSETRON [Concomitant]
     Active Substance: ONDANSETRON
     Dosage: 8 MG, ADMINISTERED TWICE
     Route: 058
     Dates: start: 20230516, end: 20230516
  20. HYPROMELLOSES [Concomitant]
     Active Substance: HYPROMELLOSES
     Indication: Eye irritation
     Dosage: 1 [DRP], AS NECESSARY, Q4H
     Route: 047
     Dates: start: 20230518
  21. HYPROMELLOSES [Concomitant]
     Active Substance: HYPROMELLOSES
     Indication: Dry eye

REACTIONS (2)
  - Cytokine release syndrome [Recovering/Resolving]
  - Cytokine release syndrome [Recovered/Resolved]

NARRATIVE: CASE EVENT DATE: 20230516
